FAERS Safety Report 5013712-6 (Version None)
Quarter: 2006Q2

REPORT INFORMATION
  Report Type: 
  Country: None (occurrence: None)
  Receive Date: 20060525
  Receipt Date: 20060511
  Transmission Date: 20061013
  Serious: Yes (Other)
  Sender: FDA-Public Use
  Company Number: 2006AP000358

PATIENT
  Age: 70 Year
  Sex: Female

DRUGS (6)
  1. METFORMIN HCL [Suspect]
     Indication: INSULIN RESISTANCE
     Dosage: 250 MG; QD; PO;
     Route: 048
     Dates: start: 20060424, end: 20060503
  2. METFORMIN HCL [Suspect]
     Indication: INSULIN RESISTANCE
     Dosage: 250 MG; QD; PO;
     Route: 048
     Dates: start: 20060506, end: 20060508
  3. THYROID TAB [Concomitant]
  4. HYDOCHLOROTHIAZIDE [Concomitant]
  5. AMILORIDE [Concomitant]
  6. BENADRYL ^PFIZER WARNER-LAMBERT^ [Concomitant]

REACTIONS (8)
  - CATARACT [None]
  - CONDITION AGGRAVATED [None]
  - DISEASE PROGRESSION [None]
  - EYE PAIN [None]
  - HEADACHE [None]
  - SINUSITIS [None]
  - TREATMENT NONCOMPLIANCE [None]
  - VISION BLURRED [None]
